FAERS Safety Report 6181540-4 (Version None)
Quarter: 2009Q2

REPORT INFORMATION
  Report Type: 
  Country: None (occurrence: None)
  Receive Date: 20090506
  Receipt Date: 20090501
  Transmission Date: 20091009
  Serious: Yes (Hospitalization, Other)
  Sender: FDA-Public Use
  Company Number: US-ASTRAZENECA-2009UW04221

PATIENT
  Age: 19298 Day
  Sex: Male
  Weight: 176.9 kg

DRUGS (9)
  1. SEROQUEL [Suspect]
     Indication: ABNORMAL BEHAVIOUR
     Dosage: 25 MG TO 300 MG
     Route: 048
     Dates: start: 20010101, end: 20080801
  2. SEROQUEL [Suspect]
     Indication: MENTAL DISORDER
     Dosage: 25 MG TO 300 MG
     Route: 048
     Dates: start: 20010101, end: 20080801
  3. ABILIFY [Concomitant]
     Dates: start: 20010901, end: 20011201
  4. RISPERDAL [Concomitant]
     Dates: start: 20051101
  5. PROZAC [Concomitant]
     Dates: start: 20020101, end: 20020301
  6. CLONAZEPAM [Concomitant]
     Dates: start: 20080401
  7. ALPRAZOLAM [Concomitant]
     Dates: start: 20050801, end: 20080501
  8. DEPAKOTE [Concomitant]
     Dates: start: 20050801, end: 20071101
  9. EFFEXOR [Concomitant]
     Dates: start: 20050801, end: 20051001

REACTIONS (15)
  - ACUTE RESPIRATORY FAILURE [None]
  - CARDIOMYOPATHY [None]
  - DIABETIC COMA [None]
  - DIABETIC NEUROPATHY [None]
  - HYPERGLYCAEMIA [None]
  - HYPOGLYCAEMIA [None]
  - LYMPHOEDEMA [None]
  - MENTAL STATUS CHANGES [None]
  - NAUSEA [None]
  - OBESITY [None]
  - PAIN [None]
  - RHABDOMYOLYSIS [None]
  - SKIN CANDIDA [None]
  - SLEEP APNOEA SYNDROME [None]
  - VOMITING [None]
